FAERS Safety Report 6934888-7 (Version None)
Quarter: 2010Q3

REPORT INFORMATION
  Report Type: 
  Country: None (occurrence: None)
  Receive Date: 20100821
  Receipt Date: 20100806
  Transmission Date: 20110219
  Serious: Yes (Other)
  Sender: FDA-Public Use
  Company Number: PHHY2010US52392

PATIENT
  Sex: Female

DRUGS (3)
  1. DIOVAN [Suspect]
     Indication: HYPERTENSION
     Dosage: 80 MG DAILY
     Dates: start: 20050318
  2. THYROID [Concomitant]
     Dosage: 75 MCG DAILY
  3. HYDROCHLOROTHIAZIDE [Concomitant]
     Dosage: 12.5 MG EVERY OTHER DAY

REACTIONS (1)
  - BREAST CANCER [None]
